FAERS Safety Report 9358024 (Version 1)
Quarter: 2013Q2

REPORT INFORMATION
  Report Type: Report from Study
  Country: FR (occurrence: FR)
  Receive Date: 20130620
  Receipt Date: 20130620
  Transmission Date: 20140414
  Serious: Yes (Hospitalization)
  Sender: FDA-Public Use
  Company Number: FR-MERCK-1306FRA005265

PATIENT
  Sex: 0

DRUGS (1)
  1. TEMOZOLOMIDE [Suspect]
     Indication: MALIGNANT GLIOMA
     Route: 048

REACTIONS (1)
  - Pulmonary embolism [Unknown]
